FAERS Safety Report 12959774 (Version 1)
Quarter: 2016Q4

REPORT INFORMATION
  Report Type: Not Available
  Country: JP (occurrence: JP)
  Receive Date: 20161121
  Receipt Date: 20161121
  Transmission Date: 20170207
  Serious: Yes (Hospitalization, Other)
  Sender: FDA-Public Use
  Company Number: JP-AKORN-43802

PATIENT
  Age: 22 Year
  Sex: Female

DRUGS (1)
  1. LEVOFLOXACIN ORAL SOLUTION [Suspect]
     Active Substance: LEVOFLOXACIN

REACTIONS (21)
  - Purpura fulminans [None]
  - Disseminated intravascular coagulation [None]
  - Ecchymosis [None]
  - Gastrointestinal sounds abnormal [None]
  - Haemoglobin decreased [None]
  - White blood cell count increased [None]
  - Abdominal pain [None]
  - Diarrhoea [None]
  - Palpable purpura [None]
  - Skin plaque [None]
  - Purpura [None]
  - Platelet count decreased [None]
  - Venous thrombosis [None]
  - Haematochezia [None]
  - Pain [None]
  - Abdominal tenderness [None]
  - Megacolon [None]
  - Haemorrhagic infarction [None]
  - Circulatory collapse [None]
  - Pyrexia [None]
  - Haematuria [None]
